FAERS Safety Report 12971285 (Version 1)
Quarter: 2016Q4

REPORT INFORMATION
  Report Type: Spontaneous
  Country: US (occurrence: US)
  Receive Date: 20161123
  Receipt Date: 20161123
  Transmission Date: 20170207
  Serious: No
  Sender: FDA-Public Use
  Company Number: US-JAZZ-2016-US-019522

PATIENT
  Sex: Female

DRUGS (21)
  1. PRISTIQ EXTENDED-RELEASE [Concomitant]
     Active Substance: DESVENLAFAXINE SUCCINATE
  2. MS CONTIN [Concomitant]
     Active Substance: MORPHINE SULFATE
  3. PHENERGAN [Concomitant]
     Active Substance: PROMETHAZINE HYDROCHLORIDE
  4. LEXAPRO [Concomitant]
     Active Substance: ESCITALOPRAM OXALATE
  5. TRIBENZOR [Concomitant]
     Active Substance: AMLODIPINE BESYLATE\HYDROCHLOROTHIAZIDE\OLMESARTAN MEDOXOMIL
  6. VITAMIN D                          /00107901/ [Concomitant]
     Active Substance: ERGOCALCIFEROL
  7. MIRALAX [Concomitant]
     Active Substance: POLYETHYLENE GLYCOL 3350
  8. HYDROCODONE BITARTRATE AND ACETAMINOPHEN [Concomitant]
     Active Substance: ACETAMINOPHEN\HYDROCODONE BITARTRATE
  9. VICTOZA [Concomitant]
     Active Substance: LIRAGLUTIDE
  10. ACTOS [Concomitant]
     Active Substance: PIOGLITAZONE HYDROCHLORIDE
  11. FLONASE                            /00908302/ [Concomitant]
     Active Substance: MOMETASONE FUROATE
  12. KLONOPIN [Concomitant]
     Active Substance: CLONAZEPAM
  13. SIMVASTATIN. [Concomitant]
     Active Substance: SIMVASTATIN
  14. XYREM [Suspect]
     Active Substance: SODIUM OXYBATE
     Indication: NARCOLEPSY
     Dosage: 3 G, BID
     Route: 048
     Dates: start: 201301, end: 201303
  15. LATUDA [Concomitant]
     Active Substance: LURASIDONE HYDROCHLORIDE
  16. ESTRACE [Concomitant]
     Active Substance: ESTRADIOL
  17. LEVEMIR [Concomitant]
     Active Substance: INSULIN DETEMIR
  18. SYMBICORT [Concomitant]
     Active Substance: BUDESONIDE\FORMOTEROL FUMARATE DIHYDRATE
  19. XYREM [Suspect]
     Active Substance: SODIUM OXYBATE
     Dosage: 4.5 G, BID
     Route: 048
     Dates: start: 201303
  20. ABILIFY [Concomitant]
     Active Substance: ARIPIPRAZOLE
  21. FLEXALL [Concomitant]

REACTIONS (1)
  - Memory impairment [Not Recovered/Not Resolved]
